FAERS Safety Report 5566910-7 (Version None)
Quarter: 2007Q4

REPORT INFORMATION
  Report Type: 
  Country: None (occurrence: None)
  Receive Date: 20071219
  Receipt Date: 20070116
  Transmission Date: 20080405
  Serious: No
  Sender: FDA-Public Use
  Company Number: US-BRISTOL-MYERS SQUIBB COMPANY-13644018

PATIENT
  Age: 51 Year
  Sex: Male
  Weight: 73 kg

DRUGS (7)
  1. PRAVACHOL [Suspect]
     Indication: BLOOD CHOLESTEROL DECREASED
     Dates: start: 20060101
  2. WELLBUTRIN [Concomitant]
  3. DIOVAN HCT [Concomitant]
  4. ASPIRIN [Concomitant]
  5. NIACIN [Concomitant]
  6. FISH OIL [Concomitant]
  7. MULTI-VITAMIN [Concomitant]

REACTIONS (1)
  - PAIN IN EXTREMITY [None]
